FAERS Safety Report 11237395 (Version 1)
Quarter: 2015Q3

REPORT INFORMATION
  Report Type: Spontaneous
  Country: JP (occurrence: JP)
  Receive Date: 20150703
  Receipt Date: 20150703
  Transmission Date: 20151125
  Serious: Yes (Death)
  Sender: FDA-Public Use
  Company Number: JP-TEVA-574310ISR

PATIENT
  Age: 76 Year
  Sex: Female
  Weight: 39 kg

DRUGS (1)
  1. E-FEN BUCCAL [Suspect]
     Active Substance: FENTANYL CITRATE
     Indication: BREAKTHROUGH PAIN
     Dosage: 50 MICROGRAM DAILY;
     Route: 002
     Dates: start: 20150319, end: 20150319

REACTIONS (1)
  - Ureteric cancer [Fatal]

NARRATIVE: CASE EVENT DATE: 20150319
